FAERS Safety Report 23909173 (Version 1)
Quarter: 2024Q2

REPORT INFORMATION
  Report Type: Spontaneous
  Country: US (occurrence: None)
  Receive Date: 20240525
  Receipt Date: 20240525
  Transmission Date: 20240716
  Serious: Yes (Life-Threatening, Disabling)
  Sender: FDA-Public Use
  Company Number: None

PATIENT
  Age: 48 Year
  Sex: Female
  Weight: 78.75 kg

DRUGS (3)
  1. COMBIPATCH [Suspect]
     Active Substance: ESTRADIOL\NORETHINDRONE ACETATE
     Indication: Menopausal symptoms
     Dosage: 1 PATCH TWICE PER WEEK TRANSDERMAL
     Route: 062
     Dates: start: 20240108, end: 20240522
  2. UNSPECIFIED INGREDIENT [Concomitant]
     Active Substance: UNSPECIFIED INGREDIENT
  3. WOMEN^S ONE A DAY MULTIVITAMIN [Concomitant]

REACTIONS (4)
  - Pulmonary embolism [None]
  - Deep vein thrombosis [None]
  - Pneumothorax [None]
  - Dyspnoea [None]

NARRATIVE: CASE EVENT DATE: 20240522
